FAERS Safety Report 9082020 (Version 1)
Quarter: 2013Q1

REPORT INFORMATION
  Report Type: Spontaneous
  Country: US (occurrence: US)
  Receive Date: 20130131
  Receipt Date: 20130131
  Transmission Date: 20140127
  Serious: Yes (Other)
  Sender: FDA-Public Use
  Company Number: US-JNJFOC-20130111525

PATIENT
  Age: 60 Year
  Sex: Female

DRUGS (5)
  1. SANDOZ FENTANYL TRANSDERMAL SYSTEM [Suspect]
     Indication: ARTHRITIS
     Dosage: NDC 0781-7244-55
     Route: 062
     Dates: start: 201212
  2. SANDOZ FENTANYL TRANSDERMAL SYSTEM [Suspect]
     Indication: FIBROMYALGIA
     Dosage: NDC 0781-7244-55
     Route: 062
     Dates: start: 201212
  3. SANDOZ FENTANYL TRANSDERMAL SYSTEM [Suspect]
     Indication: INTERVERTEBRAL DISC DEGENERATION
     Dosage: NDC 0781-7244-55
     Route: 062
     Dates: start: 201212
  4. SANDOZ FENTANYL TRANSDERMAL SYSTEM [Suspect]
     Indication: SPINAL PAIN
     Dosage: NDC 0781-7244-55
     Route: 062
     Dates: start: 201212
  5. MORPHINE [Concomitant]
     Indication: PAIN
     Route: 048

REACTIONS (8)
  - Pain [Not Recovered/Not Resolved]
  - Activities of daily living impaired [Not Recovered/Not Resolved]
  - Restlessness [Not Recovered/Not Resolved]
  - Disturbance in attention [Not Recovered/Not Resolved]
  - Product quality issue [Unknown]
  - Expired drug administered [Unknown]
  - Crying [Not Recovered/Not Resolved]
  - Drug dispensing error [Recovered/Resolved]
